FAERS Safety Report 5484100-3 (Version None)
Quarter: 2007Q4

REPORT INFORMATION
  Report Type: 
  Country: None (occurrence: None)
  Receive Date: 20071012
  Receipt Date: 20071010
  Transmission Date: 20080405
  Serious: Yes (Other)
  Sender: FDA-Public Use
  Company Number: US-SHR-US-2006-022556

PATIENT
  Age: 42 Year
  Sex: Male

DRUGS (1)
  1. BETASERON [Suspect]
     Dosage: 8 MIU, EVERY 2D
     Route: 058
     Dates: start: 20060419, end: 20060801

REACTIONS (8)
  - ABDOMINAL PAIN [None]
  - BREAST MASS [None]
  - BREAST PAIN [None]
  - BREAST TENDERNESS [None]
  - GYNAECOMASTIA [None]
  - NEOPLASM PROSTATE [None]
  - PROSTATE INDURATION [None]
  - TESTICULAR PAIN [None]
